FAERS Safety Report 6902700-8 (Version None)
Quarter: 2010Q3

REPORT INFORMATION
  Report Type: 
  Country: None (occurrence: None)
  Receive Date: 20100803
  Receipt Date: 20080819
  Transmission Date: 20110219
  Serious: No
  Sender: FDA-Public Use
  Company Number: US-PFIZER INC-2008052377

PATIENT
  Sex: Female
  Weight: 61.4 kg

DRUGS (8)
  1. LYRICA [Suspect]
     Dates: start: 20080204
  2. EFFEXOR [Concomitant]
  3. ANTIFUNGALS [Concomitant]
  4. NEXIUM [Concomitant]
  5. CELEBREX [Concomitant]
  6. ACYCLOVIR [Concomitant]
  7. METHOTREXATE [Concomitant]
  8. MEDROL [Concomitant]

REACTIONS (2)
  - INCORRECT DOSE ADMINISTERED [None]
  - SOMNOLENCE [None]
